FAERS Safety Report 20111099 (Version 1)
Quarter: 2021Q4

REPORT INFORMATION
  Report Type: Spontaneous
  Country: US (occurrence: US)
  Receive Date: 20211125
  Receipt Date: 20211125
  Transmission Date: 20220303
  Serious: Yes (Life-Threatening, Hospitalization)
  Sender: FDA-Public Use
  Company Number: US-JNJFOC-20211133662

PATIENT
  Age: 35 Year
  Sex: Female
  Weight: 56 kg

DRUGS (3)
  1. TYLENOL EXTRA STRENGTH [Suspect]
     Active Substance: ACETAMINOPHEN
     Indication: Arthralgia
     Dosage: TYLENOL ES (ACETAMINOPHEN 500 MG) PRODUCT WITH DAILY INGESTION TYLENOL ES (ACETAMINOPHEN 10,000 MG)
     Route: 048
     Dates: start: 1998, end: 20000627
  2. VICODIN [Suspect]
     Active Substance: ACETAMINOPHEN\HYDROCODONE BITARTRATE
     Indication: Arthralgia
     Dosage: VICODIN (ACETAMINOPHEN 500 MG/HYDROCODONE 5MG) AT A DOSE OF ACETAMINOPHEN 3500 MG/HYDROCODONE 35MG 7
     Route: 048
     Dates: start: 20000627, end: 20000627
  3. LEVAQUIN [Concomitant]
     Active Substance: LEVOFLOXACIN
     Indication: Product used for unknown indication
     Dosage: 500 MG FOR 10DAYS
     Route: 065
     Dates: end: 20000402

REACTIONS (12)
  - Acute hepatic failure [Recovered/Resolved]
  - Accidental overdose [Recovered/Resolved]
  - Acute kidney injury [Recovered/Resolved]
  - Pneumonia aspiration [Recovered/Resolved]
  - Staphylococcal infection [Recovered/Resolved]
  - Gastrointestinal haemorrhage [Recovered/Resolved]
  - Gastritis [Recovered/Resolved]
  - Arrhythmia [Recovered/Resolved]
  - Pneumoperitoneum [Recovered/Resolved]
  - Vocal cord paralysis [Recovered/Resolved]
  - Aphasia [Recovered/Resolved]
  - Product administration error [Recovered/Resolved]

NARRATIVE: CASE EVENT DATE: 20000630
